FAERS Safety Report 22191359 (Version 1)
Quarter: 2023Q2

REPORT INFORMATION
  Report Type: Spontaneous
  Country: US (occurrence: US)
  Receive Date: 20230410
  Receipt Date: 20230410
  Transmission Date: 20230722
  Serious: Yes (Hospitalization)
  Sender: FDA-Public Use
  Company Number: US-JNJFOC-20230402210

PATIENT
  Age: 66 Year
  Sex: Male

DRUGS (6)
  1. TYLENOL EXTRA STRENGTH [Suspect]
     Active Substance: ACETAMINOPHEN
     Indication: Headache
     Route: 065
  2. TREPROSTINIL [Suspect]
     Active Substance: TREPROSTINIL
     Indication: Pulmonary arterial hypertension
     Route: 065
  3. TYVASO [Suspect]
     Active Substance: TREPROSTINIL
     Indication: Pulmonary arterial hypertension
     Dosage: ROUTE: INHALATION?STARTED TYVASO DPI TITRATION ON 03 MAR 2023 AND DOSE WAS 16 G, QID FOR A WEEK, TH
     Route: 065
     Dates: start: 202303, end: 202303
  4. TYVASO [Suspect]
     Active Substance: TREPROSTINIL
     Dosage: ROUTE; INHALATION
     Route: 065
     Dates: start: 20230319
  5. TYVASO [Suspect]
     Active Substance: TREPROSTINIL
     Dosage: ROUTE: INHALATION
     Route: 065
     Dates: start: 20230326
  6. TYVASO [Suspect]
     Active Substance: TREPROSTINIL
     Dosage: ROUTE: INHALATION?STARTED TYVASO DPI TITRATION ON 03 MAR 2023 AND DOSE WAS 16 G, QID FOR A WEEK, TH
     Route: 065
     Dates: start: 20230303, end: 202303

REACTIONS (2)
  - Iliac artery disease [Unknown]
  - Therapy non-responder [Unknown]

NARRATIVE: CASE EVENT DATE: 20230301
